FAERS Safety Report 4740588-4 (Version None)
Quarter: 2005Q3

REPORT INFORMATION
  Report Type: 
  Country: None (occurrence: None)
  Receive Date: 20050801
  Receipt Date: 20041014
  Transmission Date: 20060218
  Serious: Yes (Hospitalization)
  Sender: FDA-Public Use
  Company Number: 209678

PATIENT
  Age: 79 Year
  Sex: Male

DRUGS (7)
  1. RITUXAN [Suspect]
     Indication: NON-HODGKIN'S LYMPHOMA
     Dosage: 700 MG, UNK, INTRAVENOUS
     Route: 042
     Dates: start: 20040706, end: 20040920
  2. VINCRISTINE [Concomitant]
  3. CYTOXAN [Concomitant]
  4. KYTRIL [Concomitant]
  5. DECADRON [Concomitant]
  6. BENADRYL [Concomitant]
  7. PREDNISONE [Concomitant]

REACTIONS (1)
  - PANCYTOPENIA [None]
